FAERS Safety Report 9308138 (Version 1)
Quarter: 2013Q2

REPORT INFORMATION
  Report Type: Spontaneous
  Country: GB (occurrence: GB)
  Receive Date: 20130524
  Receipt Date: 20130524
  Transmission Date: 20140414
  Serious: Yes (Other)
  Sender: FDA-Public Use
  Company Number: GB-PFIZER INC-2013154054

PATIENT
  Age: 31 Year
  Sex: Male

DRUGS (1)
  1. CHAMPIX [Suspect]
     Dosage: 1 MG, 2X/DAY
     Route: 048
     Dates: start: 20130411, end: 20130504

REACTIONS (3)
  - Depressed mood [Recovering/Resolving]
  - Tearfulness [Recovering/Resolving]
  - Suicidal ideation [Recovering/Resolving]
